FAERS Safety Report 4541576-3 (Version None)
Quarter: 2004Q4

REPORT INFORMATION
  Report Type: 
  Country: None (occurrence: None)
  Receive Date: 20041230
  Receipt Date: 20041214
  Transmission Date: 20050328
  Serious: Yes (Life-Threatening, Hospitalization)
  Sender: FDA-Public Use
  Company Number: PHBS2004JP16719

PATIENT
  Age: 70 Year
  Sex: Male

DRUGS (3)
  1. NORVASC [Concomitant]
     Indication: HYPERTENSION
     Route: 048
     Dates: end: 20041101
  2. DIOVAN [Suspect]
     Indication: HYPERTENSION
     Dosage: 40 MG/DAY
     Route: 048
     Dates: start: 20040101, end: 20041101
  3. DIOVAN [Suspect]
     Dosage: 80 MG/DAY
     Route: 048
     Dates: start: 20041101, end: 20041214

REACTIONS (10)
  - ALANINE AMINOTRANSFERASE INCREASED [None]
  - ASPARTATE AMINOTRANSFERASE INCREASED [None]
  - BLOOD BILIRUBIN INCREASED [None]
  - CHOLESTASIS [None]
  - ECZEMA [None]
  - HYPERSENSITIVITY [None]
  - JAUNDICE [None]
  - PROTHROMBIN TIME PROLONGED [None]
  - THROMBOCYTOPENIA [None]
  - VIRAL INFECTION [None]
